FAERS Safety Report 4346304-2 (Version None)
Quarter: 2004Q1

REPORT INFORMATION
  Report Type: 
  Country: None (occurrence: None)
  Receive Date: 20040325
  Receipt Date: 20040121
  Transmission Date: 20041129
  Serious: No
  Sender: FDA-Public Use
  Company Number: USA040157185

PATIENT
  Age: 77 Year
  Sex: Female

DRUGS (5)
  1. FORTEO [Suspect]
     Indication: OSTEOPOROSIS
     Dates: start: 20031001
  2. CYANOCOBALAMIN [Concomitant]
  3. IRON [Concomitant]
  4. EFFEXOR [Concomitant]
  5. SYNTHROID [Concomitant]

REACTIONS (5)
  - FLUID RETENTION [None]
  - HOT FLUSH [None]
  - OEDEMA PERIPHERAL [None]
  - PAIN [None]
  - WEIGHT INCREASED [None]
